FAERS Safety Report 7487793-4 (Version None)
Quarter: 2011Q2

REPORT INFORMATION
  Report Type: 
  Country: None (occurrence: None)
  Receive Date: 20110518
  Receipt Date: 20110516
  Transmission Date: 20111010
  Serious: Yes (Death, Other)
  Sender: FDA-Public Use
  Company Number: PHHY2011KR40080

PATIENT
  Sex: Male
  Weight: 71 kg

DRUGS (3)
  1. URSA [Concomitant]
     Indication: HEPATIC CIRRHOSIS
     Dosage: 300 MG, UNK
     Dates: start: 20100906, end: 20100914
  2. TELBIVUDINE [Suspect]
     Indication: HEPATITIS B
     Dosage: 600 MG, DAILY
     Route: 048
     Dates: start: 20100908, end: 20100913
  3. GODEX [Concomitant]
     Indication: HEPATIC CIRRHOSIS
     Dosage: 7.5 MG, UNK
     Dates: start: 20100906, end: 20100914

REACTIONS (5)
  - ABDOMINAL PAIN [None]
  - CELLULITIS [None]
  - DYSPNOEA [None]
  - HYPOTENSION [None]
  - DIZZINESS [None]
